FAERS Safety Report 23428736 (Version 2)
Quarter: 2024Q1

REPORT INFORMATION
  Report Type: Report from Study
  Country: NL (occurrence: NL)
  Receive Date: 20240122
  Receipt Date: 20240125
  Transmission Date: 20240410
  Serious: Yes (Hospitalization, Other)
  Sender: FDA-Public Use
  Company Number: NL-ABBVIE-5576790

PATIENT
  Sex: Female

DRUGS (9)
  1. METHOTREXATE [Suspect]
     Active Substance: METHOTREXATE
     Indication: Crohn^s disease
     Route: 065
     Dates: start: 2005
  2. AZATHIOPRINE [Suspect]
     Active Substance: AZATHIOPRINE
     Dosage: 150 MG
     Route: 065
     Dates: start: 2014
  3. HUMIRA [Suspect]
     Active Substance: ADALIMUMAB
     Indication: Crohn^s disease
     Route: 058
     Dates: start: 2014, end: 2016
  4. INFLIXIMAB [Suspect]
     Active Substance: INFLIXIMAB
     Indication: Crohn^s disease
     Route: 065
     Dates: start: 2005, end: 2005
  5. BUDESONIDE [Suspect]
     Active Substance: BUDESONIDE
     Indication: Stenosis
     Dosage: 9 MG
     Route: 065
     Dates: start: 2019
  6. STELARA [Suspect]
     Active Substance: USTEKINUMAB
     Route: 065
     Dates: start: 201908
  7. STELARA [Suspect]
     Active Substance: USTEKINUMAB
     Dosage: UNK
     Route: 065
     Dates: start: 2020
  8. PREDNISONE [Suspect]
     Active Substance: PREDNISONE
     Indication: Crohn^s disease
     Route: 065
     Dates: start: 2005
  9. PREDNISONE [Suspect]
     Active Substance: PREDNISONE
     Indication: Adrenocortical insufficiency acute

REACTIONS (16)
  - Ileal stenosis [Unknown]
  - Abdominal pain [Unknown]
  - Subileus [Unknown]
  - Crohn^s disease [Unknown]
  - Ileal stenosis [Unknown]
  - Abdominal pain [Unknown]
  - Stenosis [Unknown]
  - Acute kidney injury [Unknown]
  - Mental impairment [Unknown]
  - Abdominal pain [Recovered/Resolved]
  - Drug ineffective [Unknown]
  - Drug intolerance [Unknown]
  - Drug hypersensitivity [Not Recovered/Not Resolved]
  - Faecal calprotectin increased [Unknown]
  - Sensory loss [Unknown]
  - Maternal exposure during pregnancy [Unknown]

NARRATIVE: CASE EVENT DATE: 20140101
